FAERS Safety Report 12497354 (Version 1)
Quarter: 2016Q2

REPORT INFORMATION
  Report Type: Spontaneous
  Country: US (occurrence: US)
  Receive Date: 20160624
  Receipt Date: 20160624
  Transmission Date: 20160815
  Serious: Yes (Hospitalization)
  Sender: FDA-Public Use
  Company Number: US-MYLANLABS-2016M1026164

PATIENT

DRUGS (2)
  1. NAPROXEN. [Interacting]
     Active Substance: NAPROXEN
     Indication: BACK PAIN
     Route: 065
  2. PHENYTOIN. [Suspect]
     Active Substance: PHENYTOIN
     Indication: GENERALISED TONIC-CLONIC SEIZURE
     Route: 065

REACTIONS (6)
  - Vertigo [Recovering/Resolving]
  - Vision blurred [Unknown]
  - Toxicity to various agents [Recovering/Resolving]
  - Dizziness [Unknown]
  - Drug interaction [Recovering/Resolving]
  - Nystagmus [Recovering/Resolving]
